FAERS Safety Report 7633893-5 (Version None)
Quarter: 2011Q3

REPORT INFORMATION
  Report Type: 
  Country: None (occurrence: None)
  Receive Date: 20110725
  Receipt Date: 20110701
  Transmission Date: 20111222
  Serious: No
  Sender: FDA-Public Use
  Company Number: US-B.I. PHARMACEUTICALS,INC./RIDGEFIELD-2011-BP-16823BP

PATIENT
  Sex: Male

DRUGS (13)
  1. KRISTALOSE [Concomitant]
  2. GLIPIZIDE [Concomitant]
     Dosage: 5 MG
  3. POTASSIUM [Concomitant]
     Dosage: 200 MG
     Route: 048
  4. TRADJENTA [Suspect]
     Indication: TYPE 2 DIABETES MELLITUS
     Dosage: 5 MG
     Route: 048
     Dates: start: 20110630
  5. XOPENEX HFA [Concomitant]
     Dosage: 45 MG
     Route: 055
  6. FISH OIL [Concomitant]
     Dosage: 1000 MG
     Route: 048
  7. SPIRONOLACTONE [Concomitant]
     Dosage: 25 MG
  8. LISINOPRIL [Concomitant]
     Dosage: 25 MG
     Route: 048
  9. ASPIRIN [Concomitant]
     Dosage: 81 MG
     Route: 048
  10. CARVEDILOL [Concomitant]
     Dosage: 6.25 MG
     Route: 048
  11. LIPITOR [Concomitant]
     Dosage: 20 MG
     Route: 048
  12. FUROSEMIDE [Concomitant]
     Dosage: 20 MG
     Route: 048
  13. GABAPENTIN [Concomitant]
     Dosage: 300 MG
     Route: 048

REACTIONS (4)
  - DYSPNOEA [None]
  - DISORIENTATION [None]
  - MUSCLE SPASMS [None]
  - FEELING HOT [None]
